FAERS Safety Report 9702357 (Version 1)
Quarter: 2013Q4

REPORT INFORMATION
  Report Type: Report from Study
  Country: AU (occurrence: AU)
  Receive Date: 20131121
  Receipt Date: 20131121
  Transmission Date: 20140711
  Serious: Yes (Hospitalization, Other)
  Sender: FDA-Public Use
  Company Number: AU-JNJFOC-20131112996

PATIENT
  Age: 72 Year
  Sex: Female

DRUGS (1)
  1. SIMPONI [Suspect]
     Indication: RHEUMATOID ARTHRITIS
     Route: 058
     Dates: start: 20100429, end: 20131002

REACTIONS (4)
  - Lower respiratory tract infection [Recovering/Resolving]
  - Basal cell carcinoma [Recovering/Resolving]
  - Limb operation [Unknown]
  - Foot operation [Unknown]
